FAERS Safety Report 10722581 (Version 5)
Quarter: 2016Q1

REPORT INFORMATION
  Report Type: Report from Study
  Country: US (occurrence: US)
  Receive Date: 20150120
  Receipt Date: 20160222
  Transmission Date: 20160525
  Serious: Yes (Other)
  Sender: FDA-Public Use
  Company Number: US-AMGEN INC.-USASL2015003078

PATIENT
  Age: 49 Year
  Sex: Male

DRUGS (2)
  1. ENBREL [Suspect]
     Active Substance: ETANERCEPT
     Indication: RHEUMATOID ARTHRITIS
     Dosage: 50 MG, QWK
     Route: 065
     Dates: start: 20141205, end: 201510
  2. ENBREL [Suspect]
     Active Substance: ETANERCEPT
     Indication: PSORIATIC ARTHROPATHY
     Dosage: UNK
     Route: 065

REACTIONS (8)
  - Meniscus injury [Unknown]
  - Injection site pain [Unknown]
  - Back pain [Unknown]
  - Pruritus [Unknown]
  - Dyspepsia [Unknown]
  - Burning sensation [Unknown]
  - Abdominal pain upper [Unknown]
  - Fear [Unknown]

NARRATIVE: CASE EVENT DATE: 201412
